FAERS Safety Report 14363520 (Version 1)
Quarter: 2018Q1

REPORT INFORMATION
  Report Type: Spontaneous
  Country: JP (occurrence: JP)
  Receive Date: 20180108
  Receipt Date: 20180108
  Transmission Date: 20180509
  Serious: Yes (Hospitalization, Other)
  Sender: FDA-Public Use
  Company Number: JP-PFIZER INC-2018005286

PATIENT
  Age: 76 Year
  Sex: Male
  Weight: 47 kg

DRUGS (4)
  1. CALCIUM FOLINATE [Suspect]
     Active Substance: LEUCOVORIN CALCIUM
     Indication: RECTAL CANCER
     Dosage: UNK UNK, 1X/DAY, (600 MG/BODY (410.4 MG/M2) BOLUS)
     Route: 041
     Dates: start: 20170621, end: 20170621
  2. CALCIUM FOLINATE [Suspect]
     Active Substance: LEUCOVORIN CALCIUM
     Dosage: UNK UNK, 1X/DAY (2ND CYCLE)
     Route: 041
     Dates: start: 20170712, end: 20170712
  3. CAMPTO [Suspect]
     Active Substance: IRINOTECAN
     Indication: RECTAL CANCER
     Dosage: 200 MG, 1X/DAY (200 MG/BODY, 136.8 MG/M2)
     Route: 041
     Dates: start: 20170621, end: 20170621
  4. CAMPTO [Suspect]
     Active Substance: IRINOTECAN
     Dosage: 200 MG, 1X/DAY (2ND CYCLE)
     Route: 041
     Dates: start: 20170712, end: 20170712

REACTIONS (1)
  - Cardiac failure [Recovering/Resolving]

NARRATIVE: CASE EVENT DATE: 20170714
